FAERS Safety Report 8865354 (Version 1)
Quarter: 2012Q4

REPORT INFORMATION
  Report Type: 
  Country: US (occurrence: US)
  Receive Date: 20121024
  Receipt Date: 20121024
  Transmission Date: 20130627
  Serious: No
  Sender: FDA-Public Use
  Company Number: US-AMGEN-USASP2012002544

PATIENT
  Age: 58 Year
  Sex: Female
  Weight: 83.9 kg

DRUGS (26)
  1. ENBREL [Suspect]
     Indication: PRODUCT USED FOR UNKNOWN INDICATION
     Dosage: 50 mg, qwk
  2. FOSAMAX [Concomitant]
     Dosage: 10 mg, UNK
  3. REQUIP [Concomitant]
     Dosage: 0.5 mg, UNK
  4. LOMOTIL [Concomitant]
     Dosage: 2.5 mg, UNK
  5. CELEBREX [Concomitant]
     Dosage: 50 mg, UNK
  6. METHOTREXATE [Concomitant]
     Dosage: 2.5 mg, UNK
  7. PREDNISONE [Concomitant]
     Dosage: 2.5 mg, UNK
  8. ZYRTEC [Concomitant]
     Dosage: 5 mg, UNK
  9. NEUROTIN                           /01003001/ [Concomitant]
     Dosage: 100 mg, UNK
  10. SYNTHROID [Concomitant]
     Dosage: UNK
  11. DIOVAN [Concomitant]
     Dosage: 40 mg, UNK
  12. LANTUS [Concomitant]
     Dosage: UNK
  13. TRAMADOL HCL [Concomitant]
     Dosage: 50 mg, UNK
  14. TRAZODONE [Concomitant]
     Dosage: 100 mg, UNK
  15. ASPIRIN [Concomitant]
     Dosage: 81 mg, UNK
  16. FLONASE [Concomitant]
     Dosage: 0.05 %, UNK
  17. ADVAIR HFA [Concomitant]
     Dosage: UNK
  18. NITROFURANTIN [Concomitant]
     Dosage: 100 mg, UNK
  19. PRILOSEC                           /00661201/ [Concomitant]
     Dosage: 10 mg, UNK
  20. ALBUTEROL                          /00139501/ [Concomitant]
     Dosage: 2 mg, UNK
  21. VITAMIN D3 [Concomitant]
     Dosage: UNK
  22. FISH OIL [Concomitant]
     Dosage: UNK
  23. FLEXERIL                           /00428402/ [Concomitant]
     Dosage: 5 mg, UNK
  24. LORTAB                             /00607101/ [Concomitant]
     Dosage: UNK
  25. FOLIC ACID [Concomitant]
     Dosage: 5 mg, UNK
  26. HYDROCHLOROTHIAZIDE W/TRIAMTERENE [Concomitant]
     Dosage: 25 mg, UNK

REACTIONS (1)
  - Injection site bruising [Unknown]
